FAERS Safety Report 10744911 (Version 2)
Quarter: 2015Q2

REPORT INFORMATION
  Report Type: Spontaneous
  Country: US (occurrence: None)
  Receive Date: 20150120
  Receipt Date: 20150420
  Transmission Date: 20150821
  Serious: No
  Sender: FDA-Public Use
  Company Number: AEGR000875

PATIENT
  Age: 56 Year
  Sex: Female
  Weight: 106.1 kg

DRUGS (2)
  1. JUXTAPID [Suspect]
     Active Substance: LOMITAPIDE MESYLATE
     Indication: TYPE IIA HYPERLIPIDAEMIA
     Route: 048
     Dates: start: 20141023
  2. NEXIUM [Concomitant]
     Active Substance: ESOMEPRAZOLE MAGNESIUM

REACTIONS (9)
  - Pollakiuria [None]
  - Diarrhoea [None]
  - Flatulence [None]
  - Gastroenteritis viral [None]
  - Hunger [None]
  - Increased appetite [None]
  - Weight decreased [None]
  - Constipation [None]
  - Influenza like illness [None]

NARRATIVE: CASE EVENT DATE: 2014
